FAERS Safety Report 24436839 (Version 3)
Quarter: 2024Q4

REPORT INFORMATION
  Report Type: Spontaneous
  Country: CA (occurrence: CA)
  Receive Date: 20241015
  Receipt Date: 20241211
  Transmission Date: 20250115
  Serious: Yes (Other)
  Sender: CELLTRION
  Company Number: CA-PFIZER INC-202400051987

PATIENT

DRUGS (8)
  1. INFLECTRA [Suspect]
     Active Substance: INFLIXIMAB-DYYB
     Indication: Colitis ulcerative
     Dosage: 500 MG, 0, 2, 6 AND EVERY 8 WEEKS
     Route: 042
     Dates: start: 20240307
  2. INFLECTRA [Suspect]
     Active Substance: INFLIXIMAB-DYYB
     Dosage: 500 MG, 0, 2, 6 AND EVERY 8 WEEKS
     Route: 042
     Dates: start: 20240419
  3. INFLECTRA [Suspect]
     Active Substance: INFLIXIMAB-DYYB
     Dosage: 500 MG, AFTER 9 WEEKS AND 6 DAYS (PRESCRIBED EVERY 8 WEEKS)
     Route: 042
     Dates: start: 20240627
  4. INFLECTRA [Suspect]
     Active Substance: INFLIXIMAB-DYYB
     Dosage: 500 MG, AFTER 3 WEEKS AND 5 DAYS (500 MG, RELOAD W0, 2, THEN Q(EVERY) 4 WEEKS)
     Route: 042
     Dates: start: 20240723
  5. INFLECTRA [Suspect]
     Active Substance: INFLIXIMAB-DYYB
     Dosage: 500 MG, RELOAD W 0, 2, THEN Q4 WEEKS
     Route: 042
     Dates: start: 20240906
  6. INFLECTRA [Suspect]
     Active Substance: INFLIXIMAB-DYYB
     Dosage: 500 MG, AFTER 4 WEEKS (500 MG, RELOAD W0, 2, THEN Q4 WEEKS)
     Route: 042
     Dates: start: 20241004
  7. INFLECTRA [Suspect]
     Active Substance: INFLIXIMAB-DYYB
     Dosage: 500 MG, EVERY 4 WEEKS (RELOAD W0, 2, THEN EVERY 4 WEEKS  )
     Route: 042
     Dates: start: 20241031
  8. INFLECTRA [Suspect]
     Active Substance: INFLIXIMAB-DYYB
     Dosage: 500 MG, EVERY 4 WEEKS (RELOAD W0, 2, THEN EVERY 4 WEEKS)
     Route: 042
     Dates: start: 20241128

REACTIONS (7)
  - Tooth abscess [Recovered/Resolved]
  - Blood pressure increased [Unknown]
  - Condition aggravated [Recovering/Resolving]
  - Off label use [Unknown]
  - Off label use [Unknown]
  - Off label use [Unknown]
  - Intentional product use issue [Unknown]

NARRATIVE: CASE EVENT DATE: 20240601
